FAERS Safety Report 6641251-5 (Version None)
Quarter: 2010Q1

REPORT INFORMATION
  Report Type: 
  Country: None (occurrence: None)
  Receive Date: 20100318
  Receipt Date: 20100305
  Transmission Date: 20100710
  Serious: No
  Sender: FDA-Public Use
  Company Number: US-B.I. PHARMACEUTICALS,INC./RIDGEFIELD-2010-BP-02704BP

PATIENT
  Sex: Male

DRUGS (9)
  1. SPIRIVA [Suspect]
     Indication: ASTHMA
     Dosage: 18 MCG
     Route: 055
     Dates: start: 20091201
  2. PROAIR HFA [Concomitant]
     Indication: ASTHMA
     Dates: start: 20070101
  3. COMBIVENT [Concomitant]
     Indication: ASTHMA
     Dates: start: 20070101
  4. NEURONTIN [Concomitant]
     Indication: DEPRESSION
  5. LAMICTAL CD [Concomitant]
     Indication: CONVULSION
  6. SINGULAIR [Concomitant]
     Indication: ASTHMA
  7. CELEXA [Concomitant]
     Indication: DEPRESSION
  8. ROZEREM [Concomitant]
     Indication: RESTLESS LEGS SYNDROME
  9. REMEN [Concomitant]
     Indication: RESTLESS LEGS SYNDROME

REACTIONS (5)
  - COUGH [None]
  - HEADACHE [None]
  - PYREXIA [None]
  - RHINORRHOEA [None]
  - VOMITING [None]
